FAERS Safety Report 12435609 (Version 1)
Quarter: 2016Q2

REPORT INFORMATION
  Report Type: Spontaneous
  Country: US (occurrence: US)
  Receive Date: 20160603
  Receipt Date: 20160603
  Transmission Date: 20160815
  Serious: No
  Sender: FDA-Public Use
  Company Number: US-ROCHE-1713659

PATIENT
  Sex: Female

DRUGS (3)
  1. XELODA [Suspect]
     Active Substance: CAPECITABINE
     Indication: BREAST CANCER
     Route: 048
     Dates: start: 20160102
  2. DIOVAN [Concomitant]
     Active Substance: VALSARTAN
  3. XELODA [Suspect]
     Active Substance: CAPECITABINE
     Dosage: DAYS 1-14
     Route: 048
     Dates: start: 20160105

REACTIONS (5)
  - Fatigue [Unknown]
  - Paraesthesia [Unknown]
  - Pain in extremity [Unknown]
  - Skin discolouration [Unknown]
  - Pain [Unknown]
